FAERS Safety Report 5154879-9 (Version None)
Quarter: 2006Q4

REPORT INFORMATION
  Report Type: 
  Country: None (occurrence: None)
  Receive Date: 20061121
  Receipt Date: 20060208
  Transmission Date: 20070319
  Serious: Yes (Other)
  Sender: FDA-Public Use
  Company Number: US-BAYER-200610789BWH

PATIENT
  Age: 68 Year
  Sex: Male

DRUGS (8)
  1. NEXAVAR [Suspect]
     Indication: RENAL CELL CARCINOMA STAGE UNSPECIFIED
     Dosage: TOTAL DAILY DOSE: 800 MG  UNIT DOSE: 200 MG
     Route: 048
     Dates: start: 20060126, end: 20060204
  2. NEXAVAR [Suspect]
     Dosage: TOTAL DAILY DOSE: 400 MG  UNIT DOSE: 200 MG
     Route: 048
     Dates: start: 20060204, end: 20060205
  3. NEXAVAR [Suspect]
     Dosage: TOTAL DAILY DOSE: 800 MG  UNIT DOSE: 200 MG
     Route: 048
     Dates: start: 20060206, end: 20060101
  4. NEXAVAR [Suspect]
     Dosage: TOTAL DAILY DOSE: 400 MG  UNIT DOSE: 200 MG
     Route: 048
     Dates: start: 20060101
  5. LOTREL [Concomitant]
  6. HYDROCHLOROTHIAZIDE [Concomitant]
  7. LIPITOR [Concomitant]
  8. AMBIEN [Concomitant]

REACTIONS (16)
  - ALOPECIA [None]
  - BASAL CELL CARCINOMA [None]
  - BLISTER [None]
  - BLOOD PRESSURE INCREASED [None]
  - DIARRHOEA [None]
  - DRY SKIN [None]
  - DYSPHONIA [None]
  - ERYTHEMA [None]
  - EXFOLIATIVE RASH [None]
  - HAIR TEXTURE ABNORMAL [None]
  - HYPERKERATOSIS [None]
  - HYPERTENSION [None]
  - PRURITUS [None]
  - RASH [None]
  - RASH MACULAR [None]
  - SKIN FISSURES [None]
